FAERS Safety Report 24852823 (Version 1)
Quarter: 2025Q1

REPORT INFORMATION
  Report Type: Spontaneous
  Country: AT (occurrence: AT)
  Receive Date: 20250116
  Receipt Date: 20250116
  Transmission Date: 20250409
  Serious: Yes (Other)
  Sender: SANDOZ
  Company Number: AT-SANDOZ-SDZ2025AT002374

PATIENT
  Age: 37 Year
  Sex: Male

DRUGS (2)
  1. AMOXICILLIN\CLAVULANATE POTASSIUM [Suspect]
     Active Substance: AMOXICILLIN\CLAVULANATE POTASSIUM
     Indication: Sinusitis
     Route: 065
     Dates: start: 20250108
  2. TELMISARTAN [Concomitant]
     Active Substance: TELMISARTAN
     Indication: Cardiac failure
     Dosage: 1X DAILY, QD
     Route: 065

REACTIONS (2)
  - Back pain [Not Recovered/Not Resolved]
  - Insomnia [Unknown]

NARRATIVE: CASE EVENT DATE: 20250108
